FAERS Safety Report 7193029-4 (Version None)
Quarter: 2010Q4

REPORT INFORMATION
  Report Type: 
  Country: None (occurrence: None)
  Receive Date: 20101221
  Receipt Date: 20101221
  Transmission Date: 20110411
  Serious: Yes (Hospitalization)
  Sender: FDA-Public Use
  Company Number: None

PATIENT
  Sex: Female
  Weight: 29.4 kg

DRUGS (4)
  1. KETAMINE HYDROCHLORIDE [Suspect]
     Indication: FOREARM FRACTURE
     Dosage: 35MG ONCE IV  ; 15MG ONCE IV
     Route: 042
     Dates: start: 20101201, end: 20101201
  2. FLONASE [Concomitant]
  3. CLARITIN [Concomitant]
  4. OXYCODONE SOLUTION [Concomitant]

REACTIONS (2)
  - CONVULSION [None]
  - TONIC CLONIC MOVEMENTS [None]
